FAERS Safety Report 9663643 (Version 1)
Quarter: 2013Q4

REPORT INFORMATION
  Report Type: Spontaneous
  Country: FR (occurrence: FR)
  Receive Date: 20131101
  Receipt Date: 20131101
  Transmission Date: 20140711
  Serious: Yes (Hospitalization, Congenital Anomaly)
  Sender: FDA-Public Use
  Company Number: FR-B.I. PHARMACEUTICALS,INC./RIDGEFIELD-2013-FF-02592FF

PATIENT
  Age: 0 Day
  Sex: Female
  Weight: 3.13 kg

DRUGS (3)
  1. VIRAMUNE [Suspect]
     Indication: EXPOSURE DURING PREGNANCY
     Route: 064
  2. COMBIVIR [Suspect]
     Indication: EXPOSURE DURING PREGNANCY
     Route: 064
  3. XANAX [Suspect]
     Indication: EXPOSURE DURING PREGNANCY
     Route: 064

REACTIONS (2)
  - Pulmonary artery atresia [Unknown]
  - Atrial septal defect [Unknown]
